FAERS Safety Report 5405310-7 (Version None)
Quarter: 2007Q3

REPORT INFORMATION
  Report Type: 
  Country: None (occurrence: None)
  Receive Date: 20070803
  Receipt Date: 20070725
  Transmission Date: 20080115
  Serious: Yes (Hospitalization)
  Sender: FDA-Public Use
  Company Number: B0481561A

PATIENT
  Age: 51 Year
  Sex: Male

DRUGS (4)
  1. FORTUM [Suspect]
     Indication: SEPSIS
     Route: 042
     Dates: start: 20060902, end: 20060906
  2. AXEPIM [Suspect]
     Route: 042
     Dates: start: 20060906, end: 20060919
  3. COLISTIN SULFATE [Concomitant]
     Indication: SEPSIS
     Route: 042
  4. DIALYSIS [Concomitant]

REACTIONS (4)
  - CONFUSIONAL STATE [None]
  - ENCEPHALOPATHY [None]
  - PETIT MAL EPILEPSY [None]
  - STATUS EPILEPTICUS [None]
